FAERS Safety Report 5208896-0 (Version None)
Quarter: 2007Q1

REPORT INFORMATION
  Report Type: 
  Country: None (occurrence: None)
  Receive Date: 20070116
  Receipt Date: 20070104
  Transmission Date: 20070707
  Serious: Yes (Hospitalization)
  Sender: FDA-Public Use
  Company Number: CN-BRISTOL-MYERS SQUIBB COMPANY-13635677

PATIENT
  Age: 72 Year
  Sex: Female

DRUGS (1)
  1. MONOPRIL [Suspect]
     Indication: HYPERTENSION
     Route: 048

REACTIONS (1)
  - PANCREATITIS ACUTE [None]
